FAERS Safety Report 20584797 (Version 2)
Quarter: 2022Q2

REPORT INFORMATION
  Report Type: Report from Study
  Country: GB (occurrence: GB)
  Receive Date: 20220311
  Receipt Date: 20220411
  Transmission Date: 20220721
  Serious: Yes (Hospitalization)
  Sender: FDA-Public Use
  Company Number: GB-NOVARTISPH-NVSC2022GB056129

PATIENT
  Age: 88 Year
  Sex: Female

DRUGS (1)
  1. ERELZI [Suspect]
     Active Substance: ETANERCEPT-SZZS
     Indication: Psoriatic arthropathy
     Dosage: 50 MG (50 MG/1 ML PEN)
     Route: 065

REACTIONS (4)
  - Hip fracture [Unknown]
  - Fall [Unknown]
  - Product dose omission issue [Unknown]
  - Product dispensing issue [Unknown]
